FAERS Safety Report 19252163 (Version 1)
Quarter: 2021Q2

REPORT INFORMATION
  Report Type: Spontaneous
  Country: US (occurrence: US)
  Receive Date: 20210512
  Receipt Date: 20210512
  Transmission Date: 20210717
  Serious: Yes (Hospitalization)
  Sender: FDA-Public Use
  Company Number: None

PATIENT
  Sex: Female

DRUGS (12)
  1. CLOBEASOL OIN [Concomitant]
  2. FLUTICASONE SPR [Concomitant]
  3. TADALAFIL 20MG TAB [Suspect]
     Active Substance: TADALAFIL
     Indication: PULMONARY HYPERTENSION
     Route: 048
     Dates: start: 20190425
  4. ALPRAZOLAM. [Concomitant]
     Active Substance: ALPRAZOLAM
  5. HYDROCO/APAP [Concomitant]
     Active Substance: ACETAMINOPHEN\HYDROCODONE
  6. AMLODIPINE [Concomitant]
     Active Substance: AMLODIPINE BESYLATE
  7. ESCITALOPRAM [Concomitant]
     Active Substance: ESCITALOPRAM OXALATE
  8. FUROSEMIDE. [Concomitant]
     Active Substance: FUROSEMIDE
  9. METOPROLOL ER [Concomitant]
     Active Substance: METOPROLOL SUCCINATE
  10. POT CHLORIDE ER [Concomitant]
  11. METOPROL SUC ER [Concomitant]
     Active Substance: METOPROLOL SUCCINATE
  12. CLOTRIM/BEA DIPROP [Concomitant]

REACTIONS (2)
  - Limb operation [None]
  - Intentional dose omission [None]
